FAERS Safety Report 22971479 (Version 2)
Quarter: 2023Q4

REPORT INFORMATION
  Report Type: Spontaneous
  Country: MA (occurrence: MA)
  Receive Date: 20230922
  Receipt Date: 20231107
  Transmission Date: 20240110
  Serious: No
  Sender: FDA-Public Use
  Company Number: MA-PFIZER INC-PV202300150279

PATIENT
  Age: 9 Year
  Sex: Female

DRUGS (1)
  1. GENOTROPIN [Suspect]
     Active Substance: SOMATROPIN
     Dosage: 0.7 MG, 1X/DAY
     Route: 058
     Dates: start: 20230414, end: 20230830

REACTIONS (1)
  - Device information output issue [Unknown]

NARRATIVE: CASE EVENT DATE: 20230830
